FAERS Safety Report 8738257 (Version 2)
Quarter: 2013Q1

REPORT INFORMATION
  Report Type: Report from Study
  Country: JP (occurrence: JP)
  Receive Date: 20120823
  Receipt Date: 20130130
  Transmission Date: 20140127
  Serious: Yes (Other)
  Sender: FDA-Public Use
  Company Number: JP-MERCK-1208JPN005498

PATIENT
  Age: 61 Year
  Sex: Female
  Weight: 54 kg

DRUGS (7)
  1. REBETOL [Suspect]
     Indication: HEPATITIS C
     Dosage: 200MG 400MG IN EVENING IN MORNING
     Route: 048
     Dates: start: 20101018, end: 20101121
  2. REBETOL [Suspect]
     Dosage: 200 MG, BID
     Route: 048
     Dates: start: 20101122, end: 20110916
  3. FERON [Suspect]
     Indication: HEPATITIS C
     Dosage: 6 MILLION IU, QD
     Dates: start: 20101018, end: 20101115
  4. FERON [Suspect]
     Dosage: 6 MILLION IU, TIW
     Dates: start: 20101117, end: 20110916
  5. MUCOSTA [Concomitant]
     Indication: GASTRITIS PROPHYLAXIS
     Dosage: 100 MG, QD
     Route: 048
     Dates: start: 20101018, end: 20101115
  6. MUCOSTA [Concomitant]
     Dosage: 100 MG, TIW
     Route: 048
     Dates: start: 20101117, end: 20110916
  7. PEGASYS [Concomitant]
     Indication: HEPATITIS C
     Dosage: 90 MICROGRAM, BIW
     Route: 058
     Dates: start: 20111017

REACTIONS (4)
  - Neutrophil count decreased [Recovered/Resolved]
  - Haemoglobin decreased [Recovered/Resolved]
  - Pyrexia [Recovered/Resolved]
  - Hypothyroidism [Recovering/Resolving]
